FAERS Safety Report 10718542 (Version 2)
Quarter: 2015Q1

REPORT INFORMATION
  Report Type: Spontaneous
  Country: US (occurrence: US)
  Receive Date: 20150119
  Receipt Date: 20150202
  Transmission Date: 20150721
  Serious: No
  Sender: FDA-Public Use
  Company Number: US-LEO PHARMA-230923

PATIENT
  Age: 65 Year
  Sex: Male

DRUGS (1)
  1. PICATO [Suspect]
     Active Substance: INGENOL MEBUTATE
     Indication: PRECANCEROUS SKIN LESION
     Route: 061
     Dates: start: 20141106, end: 20141108

REACTIONS (12)
  - Application site dryness [Recovered/Resolved]
  - Pollakiuria [Recovered/Resolved]
  - Application site erythema [Recovered/Resolved]
  - Thirst [Recovered/Resolved]
  - Incorrect dose administered [Unknown]
  - Application site discharge [Recovered/Resolved]
  - Application site fissure [Recovered/Resolved]
  - Drug administered at inappropriate site [Unknown]
  - Application site discomfort [Recovered/Resolved]
  - Application site vesicles [Recovered/Resolved]
  - Application site reaction [Recovered/Resolved]
  - Application site discolouration [Recovered/Resolved]

NARRATIVE: CASE EVENT DATE: 20141107
